FAERS Safety Report 10594182 (Version 1)
Quarter: 2014Q4

REPORT INFORMATION
  Report Type: Spontaneous
  Country: US (occurrence: US)
  Receive Date: 20141119
  Receipt Date: 20141119
  Transmission Date: 20150529
  Serious: No
  Sender: FDA-Public Use
  Company Number: US-BANPHARM-20142541

PATIENT
  Age: 59 Year
  Sex: Female

DRUGS (2)
  1. PROLIA [Concomitant]
     Active Substance: DENOSUMAB
  2. ERGOCALCIFEROL CAPSULES 1.25 MG [Suspect]
     Active Substance: ERGOCALCIFEROL
     Dosage: 2 DF, Q WEEK,
     Route: 048

REACTIONS (9)
  - Decreased appetite [Unknown]
  - Thirst [Unknown]
  - Polyuria [Unknown]
  - Fatigue [Unknown]
  - Myalgia [Unknown]
  - Abdominal pain [Unknown]
  - Bone pain [Unknown]
  - Weight decreased [Unknown]
  - Asthenia [Unknown]
